FAERS Safety Report 7372705-4 (Version None)
Quarter: 2011Q1

REPORT INFORMATION
  Report Type: 
  Country: None (occurrence: None)
  Receive Date: 20110324
  Receipt Date: 20110310
  Transmission Date: 20110831
  Serious: Yes (Other)
  Sender: FDA-Public Use
  Company Number: US-BAYER-201039445NA

PATIENT
  Sex: Female

DRUGS (2)
  1. OCELLA [Suspect]
     Indication: PRODUCT USED FOR UNKNOWN INDICATION
     Dates: start: 20061101, end: 20090801
  2. YASMIN [Suspect]
     Indication: PRODUCT USED FOR UNKNOWN INDICATION
     Dates: start: 20061101, end: 20090801

REACTIONS (3)
  - CHOLECYSTITIS [None]
  - HYDROCHOLECYSTIS [None]
  - GALLBLADDER DISORDER [None]
